FAERS Safety Report 16334138 (Version 2)
Quarter: 2019Q2

REPORT INFORMATION
  Report Type: Spontaneous
  Country: ES (occurrence: ES)
  Receive Date: 20190520
  Receipt Date: 20190604
  Transmission Date: 20190711
  Serious: Yes (Life-Threatening, Hospitalization)
  Sender: FDA-Public Use
  Company Number: ES-009507513-1905ESP005900

PATIENT
  Age: 55 Year
  Sex: Female

DRUGS (5)
  1. CYCLOPHOSPHAMIDE. [Concomitant]
     Active Substance: CYCLOPHOSPHAMIDE
     Indication: INVASIVE DUCTAL BREAST CARCINOMA
     Dosage: 600 MILLIGRAM/SQ. METER
     Dates: start: 2016, end: 201609
  2. CARBOPLATIN. [Concomitant]
     Active Substance: CARBOPLATIN
     Indication: INVASIVE DUCTAL BREAST CARCINOMA
     Dosage: UNK
     Dates: start: 2016, end: 201609
  3. DOXORUBICIN [Concomitant]
     Active Substance: DOXORUBICIN
     Indication: INVASIVE DUCTAL BREAST CARCINOMA
     Dosage: 60 MILLIGRAM/SQ. METER
     Dates: start: 2016, end: 201609
  4. PEMBROLIZUMAB. [Suspect]
     Active Substance: PEMBROLIZUMAB
     Indication: INVASIVE DUCTAL BREAST CARCINOMA
     Dosage: 200MG/TW, 5 CYCLES
     Dates: start: 201603, end: 201609
  5. PACLITAXEL ALBUMIN [Concomitant]
     Active Substance: PACLITAXEL
     Indication: INVASIVE DUCTAL BREAST CARCINOMA
     Dosage: 100 MILLIGRAM/SQ. METER
     Dates: start: 2016, end: 201609

REACTIONS (5)
  - Cardiac tamponade [Recovering/Resolving]
  - Hypophysitis [Recovering/Resolving]
  - Secondary adrenocortical insufficiency [Recovering/Resolving]
  - Autoimmune pericarditis [Recovering/Resolving]
  - Primary hypothyroidism [Recovering/Resolving]

NARRATIVE: CASE EVENT DATE: 201703
